FAERS Safety Report 9975147 (Version 1)
Quarter: 2014Q1

REPORT INFORMATION
  Report Type: Report from Study
  Country: US (occurrence: US)
  Receive Date: 20140306
  Receipt Date: 20140306
  Transmission Date: 20141002
  Serious: No
  Sender: FDA-Public Use
  Company Number: US-ABBVIE-13P-163-1160204-00

PATIENT
  Age: 39 Year
  Sex: Female

DRUGS (2)
  1. HUMIRA [Suspect]
     Indication: CROHN^S DISEASE
     Dosage: LOADING DOSE
     Route: 058
     Dates: start: 20131014
  2. UNKNOWN MEDICATION [Concomitant]
     Indication: PRODUCT USED FOR UNKNOWN INDICATION

REACTIONS (4)
  - Asthenia [Recovering/Resolving]
  - Muscular weakness [Recovering/Resolving]
  - Injection site pruritus [Recovering/Resolving]
  - Injection site rash [Recovering/Resolving]
